FAERS Safety Report 5572779-7 (Version None)
Quarter: 2007Q4

REPORT INFORMATION
  Report Type: 
  Country: None (occurrence: None)
  Receive Date: 20071223
  Receipt Date: 20071213
  Transmission Date: 20080405
  Serious: Yes (Hospitalization)
  Sender: FDA-Public Use
  Company Number: PHBS2007IT20905

PATIENT
  Age: 33 Year
  Sex: Female

DRUGS (5)
  1. BETA BLOCKING AGENTS [Concomitant]
  2. CEFTAZIDIME [Concomitant]
  3. STEROIDS NOS [Concomitant]
  4. OCTREOTIDE ACETATE [Suspect]
     Indication: OESOPHAGEAL VARICES HAEMORRHAGE
     Route: 065
  5. OCTREOTIDE ACETATE [Suspect]
     Route: 065

REACTIONS (9)
  - ABDOMINAL PAIN LOWER [None]
  - ACUTE RESPIRATORY DISTRESS SYNDROME [None]
  - BLEEDING PERIPARTUM [None]
  - CAESAREAN SECTION [None]
  - DRUG EXPOSURE DURING PREGNANCY [None]
  - HAEMATEMESIS [None]
  - OESOPHAGEAL VARICES HAEMORRHAGE [None]
  - PORTAL SHUNT [None]
  - PREMATURE RUPTURE OF MEMBRANES [None]
